FAERS Safety Report 7028070-5 (Version None)
Quarter: 2010Q3

REPORT INFORMATION
  Report Type: 
  Country: None (occurrence: None)
  Receive Date: 20100930
  Receipt Date: 20100928
  Transmission Date: 20110219
  Serious: Yes (Death)
  Sender: FDA-Public Use
  Company Number: 2010SP051502

PATIENT
  Sex: Female

DRUGS (1)
  1. NUVARING [Suspect]
     Indication: PRODUCT USED FOR UNKNOWN INDICATION
     Dates: start: 20041101

REACTIONS (3)
  - DEEP VEIN THROMBOSIS [None]
  - FALL [None]
  - PULMONARY EMBOLISM [None]
